FAERS Safety Report 5146700-X (Version None)
Quarter: 2006Q4

REPORT INFORMATION
  Report Type: 
  Country: None (occurrence: None)
  Receive Date: 20061109
  Receipt Date: 20061103
  Transmission Date: 20070319
  Serious: Yes (Other)
  Sender: FDA-Public Use
  Company Number: 2006UW21702

PATIENT
  Age: 52 Year
  Sex: Female
  Weight: 70.8 kg

DRUGS (2)
  1. FASLODEX [Suspect]
     Indication: BREAST CANCER METASTATIC
     Route: 030
     Dates: start: 20060801
  2. TAXOTERE [Concomitant]
     Dates: start: 20060101

REACTIONS (1)
  - TELANGIECTASIA [None]
